FAERS Safety Report 5869187-8 (Version None)
Quarter: 2008Q3

REPORT INFORMATION
  Report Type: 
  Country: None (occurrence: None)
  Receive Date: 20080903
  Receipt Date: 20080821
  Transmission Date: 20090109
  Serious: Yes (Other)
  Sender: FDA-Public Use
  Company Number: FR-ELI_LILLY_AND_COMPANY-FR200808004848

PATIENT
  Sex: Female

DRUGS (2)
  1. HUMALOG [Suspect]
     Indication: TYPE 1 DIABETES MELLITUS
     Dosage: 6 IU, BEFORE EACH MEAL
     Route: 058
     Dates: start: 20030101
  2. LANTUS [Concomitant]
     Dosage: UNK, UNKNOWN
     Route: 058

REACTIONS (5)
  - BACK PAIN [None]
  - HYPERGLYCAEMIA [None]
  - MYALGIA [None]
  - PAIN IN EXTREMITY [None]
  - SYNCOPE [None]
